FAERS Safety Report 4635236-8 (Version None)
Quarter: 2005Q2

REPORT INFORMATION
  Report Type: 
  Country: None (occurrence: None)
  Receive Date: 20050414
  Receipt Date: 20050412
  Transmission Date: 20051028
  Serious: Yes (Death)
  Sender: FDA-Public Use
  Company Number: PHNR2005AU00743

PATIENT
  Age: 46 Year
  Sex: Female

DRUGS (1)
  1. CLOZAPINE [Suspect]

REACTIONS (7)
  - ACUTE PULMONARY OEDEMA [None]
  - BLOOD CREATINE PHOSPHOKINASE INCREASED [None]
  - CARDIOMEGALY [None]
  - CARDIOMYOPATHY [None]
  - EOSINOPHIL COUNT INCREASED [None]
  - OBESITY [None]
  - RESTRICTIVE CARDIOMYOPATHY [None]
